FAERS Safety Report 5449401-3 (Version None)
Quarter: 2007Q3

REPORT INFORMATION
  Report Type: 
  Country: None (occurrence: None)
  Receive Date: 20070911
  Receipt Date: 20070830
  Transmission Date: 20080115
  Serious: Yes (Other)
  Sender: FDA-Public Use
  Company Number: US-PFIZER INC-2007073292

PATIENT
  Sex: Male
  Weight: 93 kg

DRUGS (3)
  1. CHANTIX [Suspect]
     Indication: SMOKING CESSATION THERAPY
     Dates: start: 20070823, end: 20070829
  2. TOPROL-XL [Concomitant]
     Indication: BLOOD PRESSURE
  3. ZOCOR [Concomitant]

REACTIONS (3)
  - CRYING [None]
  - SUICIDAL IDEATION [None]
  - SUICIDE ATTEMPT [None]
